FAERS Safety Report 5313335-5 (Version None)
Quarter: 2007Q2

REPORT INFORMATION
  Report Type: 
  Country: None (occurrence: None)
  Receive Date: 20070501
  Receipt Date: 20070425
  Transmission Date: 20071010
  Serious: Yes (Other)
  Sender: FDA-Public Use
  Company Number: JP-ELI_LILLY_AND_COMPANY-JP200701002816

PATIENT
  Age: 81 Year
  Sex: Female

DRUGS (1)
  1. GEMZAR [Suspect]
     Indication: PANCREATIC CARCINOMA
     Dosage: UNK, UNK
     Route: 042
     Dates: start: 20051101, end: 20061222

REACTIONS (2)
  - FEMUR FRACTURE [None]
  - OEDEMA PERIPHERAL [None]
